FAERS Safety Report 7831204-3 (Version None)
Quarter: 2011Q4

REPORT INFORMATION
  Report Type: 
  Country: None (occurrence: None)
  Receive Date: 20111021
  Receipt Date: 20111013
  Transmission Date: 20120403
  Serious: Yes (Other)
  Sender: FDA-Public Use
  Company Number: BR-ROCHE-1006030

PATIENT
  Sex: Female

DRUGS (3)
  1. XOLAIR [Suspect]
     Indication: ASTHMA
     Dates: start: 20110504
  2. XOLAIR [Suspect]
     Indication: BRONCHIECTASIS
  3. XOLAIR [Suspect]
     Indication: EMPHYSEMA

REACTIONS (2)
  - PYREXIA [None]
  - LUNG INFECTION [None]
